FAERS Safety Report 19271046 (Version 1)
Quarter: 2021Q2

REPORT INFORMATION
  Report Type: Spontaneous
  Country: CN (occurrence: CN)
  Receive Date: 20210518
  Receipt Date: 20210518
  Transmission Date: 20210717
  Serious: Yes (Other)
  Sender: FDA-Public Use
  Company Number: CN-ROCHE-2828545

PATIENT
  Sex: Female

DRUGS (25)
  1. PERAMIVIR [Concomitant]
     Active Substance: PERAMIVIR
  2. AZITHROMYCIN ANHYDROUS. [Concomitant]
     Active Substance: AZITHROMYCIN ANHYDROUS
  3. CEFOPERAZONE [Concomitant]
     Active Substance: CEFOPERAZONE
  4. LATAMOXEF [Concomitant]
     Active Substance: LATAMOXEF
  5. MYCOPHENOLATE SODIUM [Concomitant]
     Active Substance: MYCOPHENOLATE SODIUM
  6. METHYLPREDNISOLONE SODIUM SUCCINATE. [Concomitant]
     Active Substance: METHYLPREDNISOLONE SODIUM SUCCINATE
  7. HUMAN IMMUNOGLOBULIN [Concomitant]
     Route: 042
  8. ACTEMRA [Suspect]
     Active Substance: TOCILIZUMAB
     Dosage: TOTAL 4 TIMES
     Route: 058
     Dates: start: 20210219
  9. SULBACTAM [Concomitant]
     Active Substance: SULBACTAM
  10. MEROPENEM. [Concomitant]
     Active Substance: MEROPENEM
  11. GANCICLOVIR. [Concomitant]
     Active Substance: GANCICLOVIR
  12. POTASSIUM CHLORIDE. [Concomitant]
     Active Substance: POTASSIUM CHLORIDE
  13. VALCYTE [Suspect]
     Active Substance: VALGANCICLOVIR HYDROCHLORIDE
     Indication: INFECTION PROPHYLAXIS
     Route: 065
     Dates: start: 20200907
  14. ACTEMRA [Suspect]
     Active Substance: TOCILIZUMAB
     Indication: INFLAMMATION
     Dosage: TOTAL 6 TIMES
     Route: 058
     Dates: start: 20201119, end: 20210129
  15. PIPERAZINE FERULATE [Concomitant]
     Active Substance: PIPERAZINE BISFERULATE
  16. LEFLUNOMIDE. [Concomitant]
     Active Substance: LEFLUNOMIDE
  17. MYCOPHENOLATE SODIUM [Concomitant]
     Active Substance: MYCOPHENOLATE SODIUM
  18. METHYLPREDNISOLONE. [Concomitant]
     Active Substance: METHYLPREDNISOLONE
  19. FEBUXOSTAT. [Concomitant]
     Active Substance: FEBUXOSTAT
  20. CICLOSPORIN [Concomitant]
     Active Substance: CYCLOSPORINE
  21. GLUCOSE AND SODIUM CHLORIDE [Concomitant]
     Active Substance: DEXTROSE\SODIUM CHLORIDE
  22. ERYTHROPOIETIN [Concomitant]
     Active Substance: ERYTHROPOIETIN
  23. TRISODIUM CITRATE [Concomitant]
  24. MONTMORILLONITE [Concomitant]
     Active Substance: MONTMORILLONITE
  25. TACROLIMUS. [Concomitant]
     Active Substance: TACROLIMUS

REACTIONS (4)
  - Ocular hypertension [Unknown]
  - Infection [Unknown]
  - Blood pressure increased [Unknown]
  - Hepatic function abnormal [Unknown]
